FAERS Safety Report 9563181 (Version 2)
Quarter: 2013Q3

REPORT INFORMATION
  Report Type: Spontaneous
  Country: US (occurrence: US)
  Receive Date: 20130927
  Receipt Date: 20130927
  Transmission Date: 20140515
  Serious: No
  Sender: FDA-Public Use
  Company Number: US-BRISTOL-MYERS SQUIBB COMPANY-18862383

PATIENT
  Age: 77 Year
  Sex: Female
  Weight: 94.78 kg

DRUGS (2)
  1. ONGLYZA TABS 5 MG [Suspect]
     Indication: TYPE 2 DIABETES MELLITUS
     Route: 048
     Dates: start: 20130324, end: 20130326
  2. GLIPIZIDE [Concomitant]
     Dosage: DOSE TAKEN:5AM, 5PM

REACTIONS (4)
  - Rash [Recovering/Resolving]
  - Abdominal pain upper [Unknown]
  - Headache [Recovered/Resolved]
  - Pruritus generalised [Recovered/Resolved]
